FAERS Safety Report 13825313 (Version 9)
Quarter: 2018Q1

REPORT INFORMATION
  Report Type: Spontaneous
  Country: US (occurrence: US)
  Receive Date: 20170802
  Receipt Date: 20180305
  Transmission Date: 20180508
  Serious: Yes (Congenital Anomaly, Other)
  Sender: FDA-Public Use
  Company Number: PHEH2017US024066

PATIENT
  Sex: Male

DRUGS (1)
  1. ZOFRAN [Suspect]
     Active Substance: ONDANSETRON HYDROCHLORIDE
     Indication: FOETAL EXPOSURE DURING PREGNANCY
     Dosage: MOTHER DOSE: 1 DF, Q8H
     Route: 064

REACTIONS (55)
  - Cardiac failure congestive [Unknown]
  - Cardiac murmur [Unknown]
  - Dyspnoea [Unknown]
  - Molluscum contagiosum [Unknown]
  - Eczema [Unknown]
  - Nasopharyngitis [Unknown]
  - Abdominal pain [Unknown]
  - Abdominal pain upper [Unknown]
  - Atrial septal defect [Unknown]
  - Heart disease congenital [Unknown]
  - Tricuspid valve incompetence [Unknown]
  - Tachypnoea [Unknown]
  - Asthma [Unknown]
  - Pyrexia [Unknown]
  - Vomiting [Unknown]
  - Right ventricle outflow tract obstruction [Unknown]
  - Seizure anoxic [Unknown]
  - Erythema [Unknown]
  - Heart valve incompetence [Unknown]
  - Left ventricular enlargement [Unknown]
  - Pericardial effusion [Unknown]
  - Cardiomegaly [Unknown]
  - Decreased appetite [Unknown]
  - Pharyngitis [Unknown]
  - Headache [Unknown]
  - Dizziness [Unknown]
  - Pulmonary artery stenosis congenital [Unknown]
  - Left-to-right cardiac shunt [Unknown]
  - Hypotonia [Unknown]
  - Iron deficiency anaemia [Recovered/Resolved]
  - Ear pain [Unknown]
  - Cough [Unknown]
  - Ventricular septal defect [Unknown]
  - Mitral valve incompetence [Unknown]
  - Pulmonary valve incompetence [Unknown]
  - Upper respiratory tract infection [Unknown]
  - Oropharyngeal pain [Unknown]
  - Nasal congestion [Unknown]
  - Congenital aortic anomaly [Unknown]
  - Pulmonary hypertension [Unknown]
  - Foetal exposure during pregnancy [Unknown]
  - Pain [Unknown]
  - Emotional distress [Unknown]
  - Anaemia [Unknown]
  - Hyperhidrosis [Unknown]
  - Right ventricular hypertrophy [Unknown]
  - Discomfort [Unknown]
  - Deformity [Unknown]
  - Injury [Unknown]
  - Anhedonia [Unknown]
  - Postpericardiotomy syndrome [Unknown]
  - Palpitations [Unknown]
  - Constipation [Unknown]
  - Nasal inflammation [Unknown]
  - Pruritus [Unknown]
